FAERS Safety Report 6202314-1 (Version None)
Quarter: 2009Q2

REPORT INFORMATION
  Report Type: 
  Country: None (occurrence: None)
  Receive Date: 20090520
  Receipt Date: 20090505
  Transmission Date: 20091009
  Serious: Yes (Other)
  Sender: FDA-Public Use
  Company Number: JPI-P-007092

PATIENT
  Age: 29 Year
  Sex: Male
  Weight: 78.9259 kg

DRUGS (4)
  1. XYREM [Suspect]
     Indication: NARCOLEPSY
     Dosage: 4.5 MG (2.25 MG, 2 IN 1 D), ORAL, 9 GM (4.5 GM, 2 IN 1 D), ORAL
     Route: 048
     Dates: start: 20090501, end: 20090501
  2. XYREM [Suspect]
     Indication: SOMNOLENCE
     Dosage: 4.5 MG (2.25 MG, 2 IN 1 D), ORAL, 9 GM (4.5 GM, 2 IN 1 D), ORAL
     Route: 048
     Dates: start: 20090501, end: 20090501
  3. XYREM [Suspect]
     Indication: NARCOLEPSY
     Dosage: 4.5 MG (2.25 MG, 2 IN 1 D), ORAL, 9 GM (4.5 GM, 2 IN 1 D), ORAL
     Route: 048
     Dates: start: 20080129
  4. XYREM [Suspect]
     Indication: SOMNOLENCE
     Dosage: 4.5 MG (2.25 MG, 2 IN 1 D), ORAL, 9 GM (4.5 GM, 2 IN 1 D), ORAL
     Route: 048
     Dates: start: 20080129

REACTIONS (1)
  - SINUSITIS [None]
